FAERS Safety Report 20360877 (Version 1)
Quarter: 2022Q1

REPORT INFORMATION
  Report Type: Spontaneous
  Country: US (occurrence: US)
  Receive Date: 20220121
  Receipt Date: 20220121
  Transmission Date: 20220423
  Serious: No
  Sender: FDA-Public Use
  Company Number: US-CELGENE-USA-20220104578

PATIENT
  Sex: Female
  Weight: 96 kg

DRUGS (1)
  1. REVLIMID [Suspect]
     Active Substance: LENALIDOMIDE
     Indication: Immune system disorder
     Dosage: 25 MILLIGRAM
     Route: 048
     Dates: start: 20220106

REACTIONS (3)
  - Fatigue [Unknown]
  - Nausea [Unknown]
  - Rash [Unknown]
